FAERS Safety Report 18889693 (Version 1)
Quarter: 2021Q1

REPORT INFORMATION
  Report Type: Spontaneous
  Country: US (occurrence: US)
  Receive Date: 20210213
  Receipt Date: 20210213
  Transmission Date: 20210420
  Serious: No
  Sender: FDA-Public Use
  Company Number: US-TEVA-2021-US-1876223

PATIENT
  Age: 72 Year
  Sex: Female

DRUGS (15)
  1. CLONIDINE. [Concomitant]
     Active Substance: CLONIDINE
  2. ARMODAFINIL. [Concomitant]
     Active Substance: ARMODAFINIL
  3. FUROSEMIDE. [Concomitant]
     Active Substance: FUROSEMIDE
  4. COPAXONE [Suspect]
     Active Substance: GLATIRAMER ACETATE
     Indication: MULTIPLE SCLEROSIS
     Route: 058
     Dates: start: 20170829
  5. VITAMIN C [Concomitant]
     Active Substance: ASCORBIC ACID
  6. MULTIVITAMIN. POT CHLORIDE [Concomitant]
  7. FLUTICASONE. [Concomitant]
     Active Substance: FLUTICASONE
  8. PROGESTERONE. [Concomitant]
     Active Substance: PROGESTERONE
  9. TOLTERODINE [Concomitant]
     Active Substance: TOLTERODINE
  10. BACLOFEN. [Concomitant]
     Active Substance: BACLOFEN
  11. DALFAMPRIDINE. [Concomitant]
     Active Substance: DALFAMPRIDINE
  12. ESTRADIOL. [Concomitant]
     Active Substance: ESTRADIOL
  13. FOLIC ACID. [Concomitant]
     Active Substance: FOLIC ACID
  14. STOOL SOFTENER (DOCUSATE) [Concomitant]
     Active Substance: DOCUSATE
  15. VITAMIN D [Concomitant]
     Active Substance: VITAMIN D NOS

REACTIONS (2)
  - Fatigue [Not Recovered/Not Resolved]
  - Musculoskeletal stiffness [Not Recovered/Not Resolved]
